FAERS Safety Report 15358806 (Version 2)
Quarter: 2018Q4

REPORT INFORMATION
  Report Type: Report from Study
  Country: US (occurrence: US)
  Receive Date: 20180906
  Receipt Date: 20181002
  Transmission Date: 20190204
  Serious: Yes (Hospitalization)
  Sender: FDA-Public Use
  Company Number: US-ACTELION-A-NJ2017-160565

PATIENT
  Age: 72 Year
  Sex: Female

DRUGS (1)
  1. OPSUMIT [Suspect]
     Active Substance: MACITENTAN
     Indication: PULMONARY ARTERIAL HYPERTENSION
     Dosage: 10 MG, QD
     Route: 048
     Dates: start: 20131112

REACTIONS (6)
  - Nasopharyngitis [Unknown]
  - Dyspnoea [Unknown]
  - Postoperative wound infection [Unknown]
  - Pain [Unknown]
  - Blood magnesium decreased [Unknown]
  - Incarcerated hernia [Unknown]
